FAERS Safety Report 19720888 (Version 3)
Quarter: 2021Q3

REPORT INFORMATION
  Report Type: Spontaneous
  Country: IL (occurrence: IL)
  Receive Date: 20210819
  Receipt Date: 20210903
  Transmission Date: 20211014
  Serious: Yes (Hospitalization)
  Sender: FDA-Public Use
  Company Number: IL-PFIZER INC-202101002815

PATIENT
  Age: 44 Year
  Sex: Female

DRUGS (3)
  1. PEGFILGRASTIM [Suspect]
     Active Substance: PEGFILGRASTIM
     Indication: TRIPLE NEGATIVE BREAST CANCER
     Dosage: UNK, 24 HOURS AFTER EACH CYCLE
     Dates: start: 2019
  2. CYCLOPHOSPHAMIDE. [Suspect]
     Active Substance: CYCLOPHOSPHAMIDE
     Indication: TRIPLE NEGATIVE BREAST CANCER
     Dosage: 600 MG/M2, EACH CYCLE WAS REPEATED EVERY 14 DAYS
     Route: 042
     Dates: start: 2019
  3. DOXORUBICIN HCL [Suspect]
     Active Substance: DOXORUBICIN HYDROCHLORIDE
     Indication: TRIPLE NEGATIVE BREAST CANCER
     Dosage: 60 MG/M2 EACH CYCLE WAS REPEATED EVERY 14 DAYS
     Route: 042
     Dates: start: 2019

REACTIONS (1)
  - Ejection fraction decreased [Recovered/Resolved]

NARRATIVE: CASE EVENT DATE: 2019
